FAERS Safety Report 11537993 (Version 3)
Quarter: 2015Q4

REPORT INFORMATION
  Report Type: Spontaneous
  Country: CH (occurrence: CH)
  Receive Date: 20150922
  Receipt Date: 20151125
  Transmission Date: 20160304
  Serious: Yes (Death)
  Sender: FDA-Public Use
  Company Number: CH-B.I. PHARMACEUTICALS,INC./RIDGEFIELD-2015-BI-51279SI

PATIENT
  Age: 57 Year
  Sex: Male
  Weight: 75 kg

DRUGS (3)
  1. TAXOTERE [Concomitant]
     Active Substance: DOCETAXEL
     Indication: PRODUCT USED FOR UNKNOWN INDICATION
     Route: 065
     Dates: start: 20150813, end: 20150813
  2. VARGATEF [Suspect]
     Active Substance: NINTEDANIB
     Indication: NON-SMALL CELL LUNG CANCER
     Dosage: 400 MG
     Route: 065
     Dates: start: 20150814, end: 20150817
  3. VARGATEF [Suspect]
     Active Substance: NINTEDANIB
     Dosage: 400 MG
     Route: 065
     Dates: start: 20150826, end: 20150902

REACTIONS (3)
  - Infection [Fatal]
  - Lung cancer metastatic [Fatal]
  - Pneumonia [Fatal]

NARRATIVE: CASE EVENT DATE: 20150912
